FAERS Safety Report 4329593-X (Version None)
Quarter: 2004Q2

REPORT INFORMATION
  Report Type: 
  Country: None (occurrence: None)
  Receive Date: 20040401
  Receipt Date: 20040211
  Transmission Date: 20050107
  Serious: Yes (Other)
  Sender: FDA-Public Use
  Company Number: US-ROCHE-358847

PATIENT
  Age: 52 Year
  Sex: Male
  Weight: 64.9 kg

DRUGS (3)
  1. PEGASYS [Suspect]
     Indication: HEPATITIS C
     Route: 058
     Dates: start: 20030515
  2. COPEGUS [Suspect]
     Indication: HEPATITIS C
     Dosage: 200MG IN THE MORNING, AND 400MG AT NIGHT.
     Route: 048
     Dates: start: 20031215
  3. WELLBUTRIN [Concomitant]
     Indication: DEPRESSION
     Route: 048

REACTIONS (7)
  - BLEPHARITIS [None]
  - CORNEAL DISORDER [None]
  - HAEMOGLOBIN DECREASED [None]
  - KERATITIS [None]
  - MEIBOMIANITIS [None]
  - PLATELET COUNT DECREASED [None]
  - VISION BLURRED [None]
